FAERS Safety Report 13814745 (Version 1)
Quarter: 2017Q3

REPORT INFORMATION
  Report Type: Spontaneous
  Country: US (occurrence: US)
  Receive Date: 20170731
  Receipt Date: 20170731
  Transmission Date: 20171127
  Serious: Yes (Life-Threatening, Hospitalization, Other)
  Sender: FDA-Public Use
  Company Number: None

PATIENT
  Age: 76 Year
  Sex: Female
  Weight: 68.04 kg

DRUGS (10)
  1. CEPHALEXIN 500MG [Suspect]
     Active Substance: CEPHALEXIN
     Indication: SINUSITIS
     Dosage: ?          QUANTITY:I ^{ FIGICEWUG;?
     Route: 048
     Dates: start: 20170219, end: 20170222
  2. SIMVASTATIN. [Concomitant]
     Active Substance: SIMVASTATIN
  3. ALBUTEROL. [Concomitant]
     Active Substance: ALBUTEROL
  4. FLONASE [Concomitant]
     Active Substance: FLUTICASONE PROPIONATE
  5. AMITRIPTYLINE [Concomitant]
     Active Substance: AMITRIPTYLINE
  6. ROCEPHIN [Suspect]
     Active Substance: CEFTRIAXONE SODIUM
  7. DILTIAZEM ER [Concomitant]
     Active Substance: DILTIAZEM
  8. ZANTAC [Concomitant]
     Active Substance: RANITIDINE HYDROCHLORIDE
  9. ALLEGRA [Concomitant]
     Active Substance: FEXOFENADINE HYDROCHLORIDE
  10. ADVAIR HFA [Concomitant]
     Active Substance: FLUTICASONE PROPIONATE\SALMETEROL XINAFOATE

REACTIONS (5)
  - Gait inability [None]
  - Loss of personal independence in daily activities [None]
  - Nerve injury [None]
  - Peroneal nerve palsy [None]
  - Guillain-Barre syndrome [None]

NARRATIVE: CASE EVENT DATE: 20170219
